FAERS Safety Report 17372459 (Version 1)
Quarter: 2020Q1

REPORT INFORMATION
  Report Type: Other
  Country: US (occurrence: US)
  Receive Date: 20200205
  Receipt Date: 20200205
  Transmission Date: 20200409
  Serious: Yes (Hospitalization)
  Sender: FDA-Public Use
  Company Number: US-ACORDA-ACO_163450_2020

PATIENT
  Age: 73 Year
  Sex: Female

DRUGS (1)
  1. INBRIJA [Suspect]
     Active Substance: LEVODOPA
     Indication: PARKINSON^S DISEASE
     Dosage: 42 MG; 2 CAPSULES (84 MILLIGRAM), AS NEEDED
     Dates: start: 20190801

REACTIONS (1)
  - Infection [Unknown]

NARRATIVE: CASE EVENT DATE: 20191218
